FAERS Safety Report 17411045 (Version 1)
Quarter: 2020Q1

REPORT INFORMATION
  Report Type: Spontaneous
  Country: RU (occurrence: RU)
  Receive Date: 20200212
  Receipt Date: 20200212
  Transmission Date: 20200409
  Serious: Yes (Life-Threatening)
  Sender: FDA-Public Use
  Company Number: RU-B.BRAUN MEDICAL INC.-2080248

PATIENT
  Age: 21 Year
  Sex: Female
  Weight: 40 kg

DRUGS (4)
  1. SODIUM CHLORIDE INJECTION USP 0264-7800-09 [Suspect]
     Active Substance: SODIUM CHLORIDE
     Route: 042
     Dates: start: 20191114, end: 20191114
  2. FERRIC (III) HYDROXIDE SACHAROSE COMPLEX [Suspect]
     Active Substance: IRON SUCROSE
     Route: 042
     Dates: start: 20191114, end: 20191114
  3. OMEPRAZOLE. [Concomitant]
     Active Substance: OMEPRAZOLE
     Dates: start: 20191030
  4. DIPYRIDAMOLE. [Concomitant]
     Active Substance: DIPYRIDAMOLE

REACTIONS (4)
  - Vomiting [None]
  - Sensation of foreign body [None]
  - Nausea [None]
  - Syncope [None]
